FAERS Safety Report 13944683 (Version 1)
Quarter: 2017Q3

REPORT INFORMATION
  Report Type: Spontaneous
  Country: US (occurrence: US)
  Receive Date: 20170907
  Receipt Date: 20170907
  Transmission Date: 20171128
  Serious: No
  Sender: FDA-Public Use
  Company Number: US-ROCHE-1369910

PATIENT
  Sex: Male

DRUGS (1)
  1. RITUXAN [Suspect]
     Active Substance: RITUXIMAB
     Indication: LUNG TRANSPLANT
     Dosage: SINGLE INFUSION
     Route: 042
     Dates: start: 20140211, end: 20140211

REACTIONS (1)
  - Crossmatch incompatible [Not Recovered/Not Resolved]
